FAERS Safety Report 16819929 (Version 6)
Quarter: 2019Q4

REPORT INFORMATION
  Report Type: Report from Study
  Country: US (occurrence: US)
  Receive Date: 20190917
  Receipt Date: 20191106
  Transmission Date: 20200122
  Serious: Yes (Other)
  Sender: FDA-Public Use
  Company Number: US-AMGEN INC.-USASP2019149949

PATIENT
  Age: 44 Year
  Sex: Female
  Weight: 63.95 kg

DRUGS (6)
  1. ONZETRA [Concomitant]
     Active Substance: SUMATRIPTAN SUCCINATE
     Indication: MIGRAINE
     Dosage: 11 MILLIGRAM, 1 DOSE AS NECESSARY ONE TIME
  2. SUMATRIPTAN SUCCINATE. [Concomitant]
     Active Substance: SUMATRIPTAN SUCCINATE
     Indication: HEADACHE
     Dosage: 100 MILLIGRAM, 1 TABLET AS NECESSARY, MAY REPEAT AFTER ONE HOUR
     Route: 048
  3. AIMOVIG [Suspect]
     Active Substance: ERENUMAB-AOOE
     Indication: MIGRAINE
     Dosage: 140 MILLIGRAM, QMO
     Route: 058
  4. SUMATRIPTAN. [Concomitant]
     Active Substance: SUMATRIPTAN
     Dosage: UNK
     Route: 045
  5. TRANEXAMIC ACID. [Concomitant]
     Active Substance: TRANEXAMIC ACID
     Indication: MENORRHAGIA
     Dosage: UNK
     Route: 065
     Dates: start: 2019
  6. VALIUM [Concomitant]
     Active Substance: DIAZEPAM
     Indication: MUSCLE SPASMS
     Dosage: 5 MILLIGRAM, 1 TABLET Q 8 HRS AS NECESSARY
     Route: 048

REACTIONS (9)
  - Beta 2 microglobulin abnormal [Unknown]
  - Migraine [Not Recovered/Not Resolved]
  - Neuritis [Unknown]
  - Maculopathy [Not Recovered/Not Resolved]
  - Retinal artery occlusion [Recovering/Resolving]
  - Occipital neuralgia [Unknown]
  - Beta-2 glycoprotein antibody positive [Unknown]
  - Neuralgia [Unknown]
  - White matter lesion [Unknown]

NARRATIVE: CASE EVENT DATE: 20190808
